FAERS Safety Report 11401233 (Version 3)
Quarter: 2016Q1

REPORT INFORMATION
  Report Type: Spontaneous
  Country: JP (occurrence: JP)
  Receive Date: 20150820
  Receipt Date: 20160209
  Transmission Date: 20160525
  Serious: Yes (Hospitalization, Other)
  Sender: FDA-Public Use
  Company Number: JP-GILEAD-2015-0167418

PATIENT
  Age: 12 Year
  Sex: Female

DRUGS (1)
  1. AMBRISENTAN [Suspect]
     Active Substance: AMBRISENTAN
     Indication: PRODUCT USED FOR UNKNOWN INDICATION
     Dosage: 2.5 MG, 1D
     Route: 048
     Dates: start: 20150723

REACTIONS (3)
  - Off label use [Unknown]
  - Disease progression [Unknown]
  - Headache [Unknown]

NARRATIVE: CASE EVENT DATE: 201507
